FAERS Safety Report 18335823 (Version 1)
Quarter: 2020Q4

REPORT INFORMATION
  Report Type: Report from Study
  Country: US (occurrence: US)
  Receive Date: 20201001
  Receipt Date: 20201001
  Transmission Date: 20210113
  Serious: Yes (Other)
  Sender: FDA-Public Use
  Company Number: US-PFIZER INC-2020376880

PATIENT
  Age: 5 Year
  Sex: Female

DRUGS (4)
  1. HYDROXYZINE PAMOATE. [Suspect]
     Active Substance: HYDROXYZINE PAMOATE
     Dosage: UNK
  2. IFOSFAMIDE. [Interacting]
     Active Substance: IFOSFAMIDE
     Indication: OSTEOSARCOMA
     Dosage: 1600 MG/M2, DAILY (OVER 15 MINUTES, ADMINISTERED AT 21- TO 28-DAY INTERVALS)
     Route: 042
  3. DEXTROSE. [Concomitant]
     Active Substance: DEXTROSE
     Dosage: 1000 ML/M^2, IN 1/3 NORMAL SALINE
  4. MESNA. [Interacting]
     Active Substance: MESNA
     Indication: OSTEOSARCOMA
     Dosage: 400 MG/M2, DAILY (AT FOUR AND SIX HOURS AFTER IFOSFAMIDE)

REACTIONS (3)
  - Neurotoxicity [Unknown]
  - Drug interaction [Unknown]
  - Seizure [Unknown]
